FAERS Safety Report 6114213-4 (Version None)
Quarter: 2009Q1

REPORT INFORMATION
  Report Type: 
  Country: None (occurrence: None)
  Receive Date: 20090312
  Receipt Date: 20080909
  Transmission Date: 20090719
  Serious: No
  Sender: FDA-Public Use
  Company Number: US-ABBOTT-08P-163-0467478-00

PATIENT
  Age: 27 Year
  Sex: Female

DRUGS (2)
  1. DEPAKOTE [Suspect]
     Indication: MAJOR DEPRESSION
  2. DEPAKENE [Suspect]
     Indication: MAJOR DEPRESSION

REACTIONS (1)
  - DRUG LEVEL DECREASED [None]
